FAERS Safety Report 14291755 (Version 1)
Quarter: 2017Q4

REPORT INFORMATION
  Report Type: Spontaneous
  Country: US (occurrence: US)
  Receive Date: 20171215
  Receipt Date: 20171215
  Transmission Date: 20180321
  Serious: No
  Sender: FDA-Public Use
  Company Number: US-NOVOPROD-550724

PATIENT
  Age: 34 Year
  Sex: Female

DRUGS (1)
  1. LEVEMIR [Suspect]
     Active Substance: INSULIN DETEMIR
     Indication: PRODUCT USED FOR UNKNOWN INDICATION
     Dosage: UNK UNK, BID
     Route: 058

REACTIONS (6)
  - Lacrimation increased [Unknown]
  - Headache [Unknown]
  - Dyspnoea [Unknown]
  - Device failure [Unknown]
  - Malaise [Unknown]
  - Hyperventilation [Unknown]

NARRATIVE: CASE EVENT DATE: 20170613
